FAERS Safety Report 16305913 (Version 2)
Quarter: 2019Q2

REPORT INFORMATION
  Report Type: Spontaneous
  Country: US (occurrence: US)
  Receive Date: 20190513
  Receipt Date: 20190530
  Transmission Date: 20190711
  Serious: No
  Sender: FDA-Public Use
  Company Number: US-BAYER-2019-088755

PATIENT
  Sex: Female

DRUGS (6)
  1. BELLADONNA + OPIUM [Concomitant]
  2. PEPTO BISMOL [BISMUTH SUBSALICYLATE;CALCIUM CARBONATE] [Concomitant]
     Active Substance: BISMUTH SUBSALICYLATE\CALCIUM CARBONATE
  3. HYPERTENSAN [Concomitant]
  4. FAMOTIDINE. [Concomitant]
     Active Substance: FAMOTIDINE
  5. MIRALAX [Suspect]
     Active Substance: POLYETHYLENE GLYCOL 3350
     Indication: IMPAIRED GASTRIC EMPTYING
     Dosage: 1 CAPFUL DAILY
     Route: 048
  6. XANAX [Concomitant]
     Active Substance: ALPRAZOLAM

REACTIONS (5)
  - Dysgeusia [Unknown]
  - Diarrhoea [Unknown]
  - Product use in unapproved indication [Unknown]
  - Off label use [Unknown]
  - Therapeutic product effect delayed [Unknown]
